FAERS Safety Report 11284570 (Version 1)
Quarter: 2015Q3

REPORT INFORMATION
  Report Type: Spontaneous
  Country: US (occurrence: US)
  Receive Date: 20150720
  Receipt Date: 20150720
  Transmission Date: 20151125
  Serious: No
  Sender: FDA-Public Use
  Company Number: US-TAKEDA-2015TUS007414

PATIENT
  Sex: Female
  Weight: 49.89 kg

DRUGS (3)
  1. CARAFATE [Concomitant]
     Active Substance: SUCRALFATE
     Indication: DYSPEPSIA
     Dosage: 10 MG, UNK
     Route: 048
     Dates: start: 20150424
  2. DEXILANT [Suspect]
     Active Substance: DEXLANSOPRAZOLE
     Indication: DYSPEPSIA
     Dosage: 60 MG, QD
     Route: 048
     Dates: start: 20150518
  3. GABAPENTIN. [Concomitant]
     Active Substance: GABAPENTIN
     Indication: DYSPEPSIA
     Dosage: 300 MG, TID
     Route: 048
     Dates: start: 20150522

REACTIONS (4)
  - Faeces discoloured [Not Recovered/Not Resolved]
  - Oesophageal pain [Not Recovered/Not Resolved]
  - Gastrooesophageal reflux disease [Not Recovered/Not Resolved]
  - Drug ineffective for unapproved indication [Not Recovered/Not Resolved]
